FAERS Safety Report 17188131 (Version 1)
Quarter: 2019Q4

REPORT INFORMATION
  Report Type: Spontaneous
  Country: US (occurrence: US)
  Receive Date: 20191221
  Receipt Date: 20191221
  Transmission Date: 20200122
  Serious: Yes (Life-Threatening, Other)
  Sender: FDA-Public Use
  Company Number: US-BRISTOL-MYERS SQUIBB COMPANY-BMS-2019-122078

PATIENT
  Sex: Male

DRUGS (1)
  1. OPDIVO [Suspect]
     Active Substance: NIVOLUMAB
     Indication: COLON CANCER STAGE IV
     Dosage: UNK, Q2WK, HE GETS IT THROUGH HIS PORT.
     Route: 065
     Dates: start: 2017

REACTIONS (1)
  - Malignant neoplasm progression [Unknown]
